FAERS Safety Report 8815607 (Version 1)
Quarter: 2012Q4

REPORT INFORMATION
  Report Type: 
  Country: US (occurrence: US)
  Receive Date: 20120928
  Receipt Date: 20120928
  Transmission Date: 20130627
  Serious: No
  Sender: FDA-Public Use
  Company Number: US-PFIZER INC-2012238045

PATIENT
  Sex: Female

DRUGS (2)
  1. ZITHROMAX [Suspect]
     Dosage: 250 mg, as needed
  2. ZITHROMAX [Suspect]
     Dosage: 250 mg, 2x/day
     Dates: end: 20120924

REACTIONS (2)
  - Pruritus [Unknown]
  - Erythema [Unknown]
